FAERS Safety Report 9393107 (Version 2)
Quarter: 2013Q3

REPORT INFORMATION
  Report Type: Spontaneous
  Country: US (occurrence: US)
  Receive Date: 20130710
  Receipt Date: 20130820
  Transmission Date: 20140515
  Serious: No
  Sender: FDA-Public Use
  Company Number: US-TEVA-417937USA

PATIENT
  Age: 70 Year
  Sex: Female

DRUGS (3)
  1. PROAIR HFA [Suspect]
     Route: 055
     Dates: start: 20130429
  2. LISINOPRIL [Concomitant]
     Indication: HYPERTENSION
  3. METOPROLOL [Concomitant]
     Indication: HYPERTENSION

REACTIONS (3)
  - Hypertension [Unknown]
  - Pain [Unknown]
  - Oedema mouth [Unknown]
